FAERS Safety Report 24140848 (Version 2)
Quarter: 2024Q3

REPORT INFORMATION
  Report Type: Spontaneous
  Country: JP (occurrence: JP)
  Receive Date: 20240726
  Receipt Date: 20240726
  Transmission Date: 20241017
  Serious: Yes (Other)
  Sender: BRISTOL MYERS SQUIBB
  Company Number: JP-ONO-2024JP015483

PATIENT
  Age: 47 Year
  Sex: Female

DRUGS (4)
  1. OPDIVO [Suspect]
     Active Substance: NIVOLUMAB
     Indication: Angiosarcoma
     Route: 041
  2. OPDIVO [Suspect]
     Active Substance: NIVOLUMAB
     Route: 041
  3. CARBOPLATIN [Concomitant]
     Active Substance: CARBOPLATIN
     Indication: Angiosarcoma
  4. PACLITAXEL [Concomitant]
     Active Substance: PACLITAXEL
     Indication: Angiosarcoma

REACTIONS (4)
  - Immune-mediated hypothyroidism [Unknown]
  - Immune-mediated adrenal insufficiency [Unknown]
  - Fulminant type 1 diabetes mellitus [Unknown]
  - Off label use [Unknown]
